FAERS Safety Report 4999416-4 (Version None)
Quarter: 2006Q2

REPORT INFORMATION
  Report Type: 
  Country: None (occurrence: None)
  Receive Date: 20060511
  Receipt Date: 20060504
  Transmission Date: 20061013
  Serious: Yes (Death)
  Sender: FDA-Public Use
  Company Number: US-ROCHE-447084

PATIENT
  Age: 44 Year
  Sex: Male

DRUGS (1)
  1. KYTRIL [Suspect]
     Indication: NAUSEA
     Route: 048
     Dates: start: 20060125

REACTIONS (1)
  - RENAL CANCER METASTATIC [None]
